FAERS Safety Report 12162367 (Version 1)
Quarter: 2016Q1

REPORT INFORMATION
  Report Type: Spontaneous
  Country: US (occurrence: None)
  Receive Date: 20160308
  Receipt Date: 20160308
  Transmission Date: 20160526
  Serious: No
  Sender: FDA-Public Use
  Company Number: None

PATIENT
  Age: 45 Year
  Sex: Female

DRUGS (3)
  1. GLATOPA [Suspect]
     Active Substance: GLATIRAMER ACETATE
     Indication: MULTIPLE SCLEROSIS
     Route: 058
     Dates: start: 20160113
  2. BACLOFEN. [Concomitant]
     Active Substance: BACLOFEN
  3. OXCARBAZEPIN [Concomitant]
     Active Substance: OXCARBAZEPINE

REACTIONS (2)
  - Therapy change [None]
  - Drug ineffective [None]
